FAERS Safety Report 12387065 (Version 3)
Quarter: 2016Q2

REPORT INFORMATION
  Report Type: Report from Study
  Country: US (occurrence: US)
  Receive Date: 20160519
  Receipt Date: 20160616
  Transmission Date: 20160815
  Serious: Yes (Hospitalization, Other)
  Sender: FDA-Public Use
  Company Number: US-JNJFOC-20160511308

PATIENT
  Sex: Female
  Weight: 56.7 kg

DRUGS (12)
  1. PROCHLORPERAZINE MALEATE. [Concomitant]
     Active Substance: PROCHLORPERAZINE MALEATE
     Route: 048
  2. TEMAZEPAM. [Concomitant]
     Active Substance: TEMAZEPAM
     Route: 048
  3. CITRACAL PLUS D [Concomitant]
     Route: 048
  4. LISINOPRIL. [Concomitant]
     Active Substance: LISINOPRIL
     Route: 048
  5. BACLOFEN. [Concomitant]
     Active Substance: BACLOFEN
     Route: 048
  6. PAROXETINE HCL [Concomitant]
     Active Substance: PAROXETINE HYDROCHLORIDE
     Route: 048
  7. METOPROLOL SUCCINATE. [Concomitant]
     Active Substance: METOPROLOL SUCCINATE
     Route: 048
  8. OXYCODONE HYDROCHLORIDE. [Concomitant]
     Active Substance: OXYCODONE HYDROCHLORIDE
     Route: 048
  9. NAPROSYN [Concomitant]
     Active Substance: NAPROXEN
     Route: 048
  10. SPIRONOLACTONE. [Concomitant]
     Active Substance: SPIRONOLACTONE
     Route: 048
  11. YONDELIS [Suspect]
     Active Substance: TRABECTEDIN
     Indication: LEIOMYOSARCOMA
     Route: 042
     Dates: start: 20160302, end: 20160302
  12. YONDELIS [Suspect]
     Active Substance: TRABECTEDIN
     Indication: LEIOMYOSARCOMA
     Route: 042
     Dates: start: 201602, end: 2016

REACTIONS (6)
  - Retching [Recovered/Resolved]
  - Thrombosis [Recovered/Resolved]
  - Feeling abnormal [Unknown]
  - Haematuria [Recovered/Resolved]
  - Aptyalism [Recovered/Resolved]
  - Hepatic enzyme abnormal [Unknown]

NARRATIVE: CASE EVENT DATE: 2016
